FAERS Safety Report 12923878 (Version 1)
Quarter: 2016Q4

REPORT INFORMATION
  Report Type: Spontaneous
  Country: US (occurrence: US)
  Receive Date: 20161108
  Receipt Date: 20161108
  Transmission Date: 20170207
  Serious: Yes (Hospitalization)
  Sender: FDA-Public Use
  Company Number: US-PFM-2016-01597

PATIENT
  Age: 4 Year
  Sex: Male

DRUGS (1)
  1. PROPRANOLOL [Suspect]
     Active Substance: PROPRANOLOL\PROPRANOLOL HYDROCHLORIDE
     Indication: HYPERTENSION
     Route: 065

REACTIONS (4)
  - Product use issue [Unknown]
  - Drug administered to patient of inappropriate age [Unknown]
  - Substance-induced psychotic disorder [Recovered/Resolved]
  - Off label use [Unknown]
